FAERS Safety Report 16867430 (Version 1)
Quarter: 2019Q3

REPORT INFORMATION
  Report Type: Spontaneous
  Country: US (occurrence: US)
  Receive Date: 20190806
  Receipt Date: 20190806
  Transmission Date: 20191007
  Serious: No
  Sender: FDA-Public Use
  Company Number: None

PATIENT

DRUGS (1)
  1. BEXAROTENE 75MG MYLAN [Suspect]
     Active Substance: BEXAROTENE
     Indication: CUTANEOUS T-CELL LYMPHOMA
     Route: 048
     Dates: start: 20190502

REACTIONS (3)
  - Neutropenia [None]
  - Decreased appetite [None]
  - Abdominal discomfort [None]

NARRATIVE: CASE EVENT DATE: 20190806
